FAERS Safety Report 17009567 (Version 3)
Quarter: 2020Q2

REPORT INFORMATION
  Report Type: Spontaneous
  Country: CO (occurrence: CO)
  Receive Date: 20191108
  Receipt Date: 20200615
  Transmission Date: 20200713
  Serious: Yes (Other)
  Sender: FDA-Public Use
  Company Number: CO-PFIZER INC-2019479845

PATIENT
  Age: 43 Year
  Sex: Female

DRUGS (1)
  1. SUTENT [Suspect]
     Active Substance: SUNITINIB MALATE
     Indication: RENAL CANCER METASTATIC
     Dosage: 50 MG, CYCLIC (14 DAYS AND REST 7 DAYS, TAKES AGAIN 14 DAYS)
     Route: 048
     Dates: start: 201906

REACTIONS (14)
  - Malaise [Unknown]
  - Dysuria [Unknown]
  - Skin injury [Not Recovered/Not Resolved]
  - Skin infection [Unknown]
  - Depression [Unknown]
  - Dyschezia [Unknown]
  - Gastritis [Unknown]
  - Nausea [Unknown]
  - Dyspepsia [Unknown]
  - Skin toxicity [Unknown]
  - Dry skin [Not Recovered/Not Resolved]
  - Anal injury [Unknown]
  - Ageusia [Unknown]
  - Product residue present [Unknown]

NARRATIVE: CASE EVENT DATE: 2019
